FAERS Safety Report 15172913 (Version 1)
Quarter: 2018Q3

REPORT INFORMATION
  Report Type: Spontaneous
  Country: US (occurrence: US)
  Receive Date: 20180720
  Receipt Date: 20180720
  Transmission Date: 20181010
  Serious: No
  Sender: FDA-Public Use
  Company Number: US-ROCHE-1961028

PATIENT
  Age: 69 Year
  Sex: Female
  Weight: 44.95 kg

DRUGS (5)
  1. BONIVA [Suspect]
     Active Substance: IBANDRONATE SODIUM
     Dosage: GENERIC BONIVA
     Route: 042
     Dates: start: 2015
  2. FORTEO [Concomitant]
     Active Substance: TERIPARATIDE
     Route: 065
     Dates: start: 20170705, end: 20170705
  3. RECLAST [Concomitant]
     Active Substance: ZOLEDRONIC ACID
     Route: 065
     Dates: start: 2009, end: 2012
  4. PROLIA [Concomitant]
     Active Substance: DENOSUMAB
     Route: 065
     Dates: start: 2013
  5. BONIVA [Suspect]
     Active Substance: IBANDRONATE SODIUM
     Indication: PRODUCT USED FOR UNKNOWN INDICATION
     Route: 042
     Dates: start: 200601, end: 2009

REACTIONS (2)
  - Pain [Not Recovered/Not Resolved]
  - Insomnia [Not Recovered/Not Resolved]

NARRATIVE: CASE EVENT DATE: 2015
